FAERS Safety Report 20735106 (Version 2)
Quarter: 2023Q1

REPORT INFORMATION
  Report Type: Spontaneous
  Country: US (occurrence: US)
  Receive Date: 20220421
  Receipt Date: 20230111
  Transmission Date: 20230418
  Serious: Yes (Other)
  Sender: FDA-Public Use
  Company Number: US-PFIZER INC-202200570982

PATIENT
  Age: 78 Year
  Sex: Female

DRUGS (1)
  1. EUCRISA [Suspect]
     Active Substance: CRISABOROLE
     Dosage: APPLY TO AFFECTED AREA OF THE BODY TWICE DAILY
     Route: 061

REACTIONS (1)
  - Diabetes mellitus [Unknown]
